FAERS Safety Report 13063208 (Version 2)
Quarter: 2017Q1

REPORT INFORMATION
  Report Type: Spontaneous
  Country: US (occurrence: US)
  Receive Date: 20161227
  Receipt Date: 20170109
  Transmission Date: 20170428
  Serious: Yes (Death, Other)
  Sender: FDA-Public Use
  Company Number: US-DRREDDYS-USA/USA/16/0085553

PATIENT
  Age: 66 Year
  Sex: Male

DRUGS (1)
  1. DOCETAXEL. [Suspect]
     Active Substance: DOCETAXEL
     Indication: HEAD AND NECK CANCER
     Route: 065

REACTIONS (5)
  - Soft tissue necrosis [Unknown]
  - Death [Fatal]
  - Mucosal ulceration [Unknown]
  - Osteoradionecrosis [Unknown]
  - Dysphagia [Not Recovered/Not Resolved]
